FAERS Safety Report 8323261 (Version 3)
Quarter: 2012Q4

REPORT INFORMATION
  Report Type: 
  Country: US (occurrence: US)
  Receive Date: 20120105
  Receipt Date: 20121102
  Transmission Date: 20130627
  Serious: Yes (Hospitalization, Other)
  Sender: FDA-Public Use
  Company Number: US-ELI_LILLY_AND_COMPANY-US201011006146

PATIENT
  Age: 77 None
  Sex: Female
  Weight: 40.82 kg

DRUGS (25)
  1. FORTEO [Suspect]
     Indication: OSTEOPOROSIS
     Dosage: 20 ug, daily (1/D)
     Route: 058
  2. FORTEO [Suspect]
     Dosage: 20 ug, daily (1/D)
     Route: 058
  3. FORTEO [Suspect]
     Dosage: 20 ug, daily (1/D)
     Route: 058
  4. FORTEO [Suspect]
     Dosage: 20 ug, daily (1/D)
     Route: 058
  5. FORTEO [Suspect]
     Dosage: 20 ug, daily (1/D)
     Route: 058
  6. FORTEO [Suspect]
     Dosage: 20 ug, qd
     Route: 058
  7. FORTEO [Suspect]
     Dosage: 20 ug, qd
     Route: 058
  8. FORTEO [Suspect]
     Dosage: 20 ug, qd
     Route: 058
  9. FORTEO [Suspect]
     Dosage: 20 ug, qd
     Route: 058
     Dates: end: 20121021
  10. ARANESP [Concomitant]
     Indication: HAEMOGLOBIN DECREASED
  11. MEGACE [Concomitant]
  12. VITAMIN B6 [Concomitant]
  13. CALTRATE WITH VITAMIN D [Concomitant]
  14. VITAMIN E [Concomitant]
     Dosage: 400 u, tid
  15. VITAMIN D NOS [Concomitant]
  16. OMEPRAZOLE [Concomitant]
     Dosage: 20 mg, unknown
  17. LISINOPRIL [Concomitant]
     Dosage: 10 mg, unknown
  18. SIMVASTATIN [Concomitant]
     Dosage: 40 mg, unknown
  19. AMLODIPINE [Concomitant]
     Dosage: 2.5 mg, qd
  20. HYDROXYZINE [Concomitant]
  21. TRAMADOL HCL [Concomitant]
  22. FAMOTIDINE [Concomitant]
  23. PROCHLORPERAZINE [Concomitant]
  24. WARFARIN [Concomitant]
  25. COUMADIN [Concomitant]

REACTIONS (24)
  - Thrombosis [Not Recovered/Not Resolved]
  - Anaemia [Unknown]
  - Arthritis [Unknown]
  - Wart excision [Unknown]
  - Oedema peripheral [Recovering/Resolving]
  - Rash [Unknown]
  - Pruritus [Recovered/Resolved]
  - Joint injury [Unknown]
  - Ocular discomfort [Unknown]
  - Malabsorption [Unknown]
  - Blood iron decreased [Unknown]
  - Anxiety [Unknown]
  - Somnolence [Not Recovered/Not Resolved]
  - Fatigue [Unknown]
  - Fall [Unknown]
  - Insomnia [Unknown]
  - Arthralgia [Recovered/Resolved]
  - Tooth disorder [Unknown]
  - Injection site bruising [Recovered/Resolved]
  - Bronchitis [Unknown]
  - Blood test abnormal [Unknown]
  - Fall [Unknown]
  - Contusion [Unknown]
  - Contusion [Unknown]
